FAERS Safety Report 10011344 (Version 1)
Quarter: 2014Q1

REPORT INFORMATION
  Report Type: Spontaneous
  Country: AU (occurrence: None)
  Receive Date: 20140311
  Receipt Date: 20140311
  Transmission Date: 20141002
  Serious: Yes (Death, Hospitalization)
  Sender: FDA-Public Use
  Company Number: 2013000552

PATIENT
  Age: 75 Year
  Sex: Female

DRUGS (3)
  1. ACEON [Suspect]
     Indication: CARDIAC FAILURE CONGESTIVE
     Route: 048
  2. DICLOFENAC (DICLOFENAC) [Suspect]
     Indication: OSTEOARTHRITIS
     Route: 048
  3. FUROSEMIDE (FUROSEMIDE) [Suspect]
     Indication: CARDIAC FAILURE CONGESTIVE
     Route: 048

REACTIONS (6)
  - Diarrhoea [None]
  - Cerebrovascular disorder [None]
  - Renal failure acute [None]
  - Acidosis [None]
  - Hyperphosphataemia [None]
  - Hyperkalaemia [None]
